FAERS Safety Report 16668045 (Version 2)
Quarter: 2019Q4

REPORT INFORMATION
  Report Type: Spontaneous
  Country: CA (occurrence: CA)
  Receive Date: 20190805
  Receipt Date: 20191211
  Transmission Date: 20200122
  Serious: Yes (Other)
  Sender: FDA-Public Use
  Company Number: CA-JNJFOC-20190742048

PATIENT
  Age: 32 Year
  Sex: Male
  Weight: 80.36 kg

DRUGS (1)
  1. INVEGA TRINZA [Suspect]
     Active Substance: PALIPERIDONE PALMITATE
     Indication: SCHIZOPHRENIA
     Route: 030

REACTIONS (3)
  - Substance abuse [Unknown]
  - Wrong technique in product usage process [Unknown]
  - Psychotic symptom [Recovered/Resolved]

NARRATIVE: CASE EVENT DATE: 201906
